FAERS Safety Report 6642130-X (Version None)
Quarter: 2010Q1

REPORT INFORMATION
  Report Type: 
  Country: None (occurrence: None)
  Receive Date: 20100319
  Receipt Date: 20100312
  Transmission Date: 20100710
  Serious: Yes (Hospitalization, Other)
  Sender: FDA-Public Use
  Company Number: FR-BRISTOL-MYERS SQUIBB COMPANY-14951420

PATIENT
  Age: 81 Year
  Sex: Male
  Weight: 57 kg

DRUGS (3)
  1. REYATAZ [Suspect]
     Route: 048
     Dates: start: 20070911, end: 20100119
  2. TRUVADA [Suspect]
     Route: 048
     Dates: start: 20070911
  3. NORVIR [Suspect]
     Route: 048
     Dates: start: 20070911

REACTIONS (2)
  - CALCULUS BLADDER [None]
  - CHOLELITHIASIS [None]
